FAERS Safety Report 6240221-9 (Version None)
Quarter: 2009Q2

REPORT INFORMATION
  Report Type: 
  Country: None (occurrence: None)
  Receive Date: 20090623
  Receipt Date: 20080404
  Transmission Date: 20091009
  Serious: No
  Sender: FDA-Public Use
  Company Number: US-ASTRAZENECA-2008UW06903

PATIENT
  Age: 5 Year
  Sex: Male

DRUGS (2)
  1. PULMICORT RESPULES [Suspect]
     Indication: ASTHMA
     Route: 055
     Dates: start: 20080201
  2. XOPENEX [Concomitant]

REACTIONS (2)
  - NERVOUSNESS [None]
  - PSYCHOMOTOR HYPERACTIVITY [None]
